FAERS Safety Report 8061280-7 (Version None)
Quarter: 2012Q1

REPORT INFORMATION
  Report Type: 
  Country: None (occurrence: None)
  Receive Date: 20120120
  Receipt Date: 20110823
  Transmission Date: 20120608
  Serious: No
  Sender: FDA-Public Use
  Company Number: US-ALLERGAN-1111285US

PATIENT
  Age: 54 Year
  Sex: Female

DRUGS (1)
  1. RESTASIS [Suspect]
     Indication: DRY EYE
     Dosage: 2 GTT, BID
     Route: 047
     Dates: start: 20110701, end: 20110817

REACTIONS (7)
  - EYELIDS PRURITUS [None]
  - OCULAR HYPERAEMIA [None]
  - BURNING SENSATION [None]
  - EYE IRRITATION [None]
  - EYE PRURITUS [None]
  - DRY SKIN [None]
  - EYELID OEDEMA [None]
